FAERS Safety Report 7197038-0 (Version None)
Quarter: 2010Q4

REPORT INFORMATION
  Report Type: 
  Country: None (occurrence: None)
  Receive Date: 20101224
  Receipt Date: 20101217
  Transmission Date: 20110411
  Serious: Yes (Hospitalization)
  Sender: FDA-Public Use
  Company Number: PHHO2010BE19238

PATIENT
  Sex: Male

DRUGS (10)
  1. NO TREATMENT RECEIVED [Suspect]
     Indication: RENAL TRANSPLANT
     Dosage: UNK
     Route: 048
  2. MYFORTIC [Suspect]
     Indication: RENAL TRANSPLANT
     Dosage: 1440 MG, QD
     Route: 048
     Dates: start: 20090513, end: 20100706
  3. NEORAL [Concomitant]
     Indication: RENAL TRANSPLANT
  4. OMEPRAZOLE [Concomitant]
  5. INDERAL [Concomitant]
  6. CALCIUM CARBONATE [Concomitant]
  7. MAREVAN [Concomitant]
  8. FRAXIPARIN [Concomitant]
  9. MOXON [Concomitant]
  10. FORZATEN (OLMESARTAN MEDOXOMIL/ AMLODIPINE BESILATE) [Suspect]

REACTIONS (5)
  - ACIDOSIS [None]
  - DEHYDRATION [None]
  - DIARRHOEA [None]
  - RENAL IMPAIRMENT [None]
  - WEIGHT DECREASED [None]
